FAERS Safety Report 4541612-4 (Version None)
Quarter: 2004Q4

REPORT INFORMATION
  Report Type: 
  Country: None (occurrence: None)
  Receive Date: 20041230
  Receipt Date: 20040727
  Transmission Date: 20050328
  Serious: Yes (Other)
  Sender: FDA-Public Use
  Company Number: PHNU2004DE02667

PATIENT
  Age: 56 Year
  Sex: Female

DRUGS (2)
  1. ESTRATEST [Suspect]
     Indication: MENOPAUSAL DISORDER
     Dosage: UNK, UNK
     Dates: start: 20031124
  2. ESTALIS SEQUI [Suspect]
     Indication: MENOPAUSAL DISORDER
     Dosage: UNK, UNK
     Dates: start: 20020201

REACTIONS (3)
  - BREAST CANCER [None]
  - LIVER FUNCTION TEST ABNORMAL [None]
  - LYMPHADENOPATHY [None]
